FAERS Safety Report 10372364 (Version 2)
Quarter: 2014Q3

REPORT INFORMATION
  Report Type: Spontaneous
  Country: US (occurrence: US)
  Receive Date: 20140808
  Receipt Date: 20140808
  Transmission Date: 20150326
  Serious: Yes (Other)
  Sender: FDA-Public Use
  Company Number: US-BRISTOL-MYERS SQUIBB COMPANY-19119890

PATIENT
  Age: 75 Year
  Sex: Male
  Weight: 106.57 kg

DRUGS (6)
  1. METOPROLOL [Concomitant]
     Active Substance: METOPROLOL
  2. WARFARIN [Concomitant]
     Active Substance: WARFARIN
     Dosage: 1 DF: NINE 5MG TABLETS; ONE 5MG PILL 4 DAYS/WEEK; AND 1.5 5MG PILLS 3 DAYS/WEEK
  3. SPRYCEL (CML) TABS 50 MG [Suspect]
     Active Substance: DASATINIB
     Indication: CHRONIC MYELOID LEUKAEMIA
     Route: 048
     Dates: start: 20121031
  4. FUROSEMIDE. [Concomitant]
     Active Substance: FUROSEMIDE
  5. CRESTOR [Concomitant]
     Active Substance: ROSUVASTATIN CALCIUM
  6. AMLODIPINE [Concomitant]
     Active Substance: AMLODIPINE BESYLATE
     Dosage: 1 DF: 10/40MG

REACTIONS (5)
  - Skin exfoliation [Unknown]
  - Dysphonia [Not Recovered/Not Resolved]
  - Pericarditis [Unknown]
  - Pleural effusion [Unknown]
  - Acne [Unknown]

NARRATIVE: CASE EVENT DATE: 2013
